FAERS Safety Report 9562275 (Version 1)
Quarter: 2013Q3

REPORT INFORMATION
  Report Type: Spontaneous
  Country: US (occurrence: US)
  Receive Date: 20130927
  Receipt Date: 20130927
  Transmission Date: 20140515
  Serious: No
  Sender: FDA-Public Use
  Company Number: US-GLAXOSMITHKLINE-A1038206A

PATIENT
  Age: 79 Year
  Sex: Female

DRUGS (8)
  1. MEKINIST [Suspect]
     Indication: MALIGNANT MELANOMA
     Dosage: 1TAB PER DAY
     Route: 048
     Dates: start: 20130813
  2. TAFINLAR [Suspect]
     Indication: MALIGNANT MELANOMA
     Dosage: 150MG TWICE PER DAY
     Route: 048
     Dates: start: 20130813
  3. DIOVAN [Concomitant]
  4. SPIRIVA [Concomitant]
  5. ALLOPURINOL [Concomitant]
  6. SULFASALAZINE [Concomitant]
  7. XALATAN [Concomitant]
  8. COLCHICINE [Concomitant]

REACTIONS (5)
  - Nausea [Unknown]
  - Fatigue [Unknown]
  - Feeling abnormal [Unknown]
  - Decreased appetite [Unknown]
  - Adverse drug reaction [Unknown]
